FAERS Safety Report 26102080 (Version 1)
Quarter: 2025Q4

REPORT INFORMATION
  Report Type: Spontaneous
  Country: US (occurrence: US)
  Receive Date: 20251128
  Receipt Date: 20251128
  Transmission Date: 20260117
  Serious: Yes (Other)
  Sender: SANDOZ
  Company Number: US-SANDOZ-SDZ2025US088805

PATIENT
  Age: 67 Year
  Sex: Female
  Weight: 95.238 kg

DRUGS (2)
  1. RECLAST [Suspect]
     Active Substance: ZOLEDRONIC ACID
     Indication: Osteopenia
     Dosage: 1 MG, ONE SINGLE DOSE
     Route: 042
     Dates: start: 20251020
  2. RECLAST [Suspect]
     Active Substance: ZOLEDRONIC ACID
     Indication: Fracture

REACTIONS (6)
  - Ear discomfort [Not Recovered/Not Resolved]
  - Tinnitus [Not Recovered/Not Resolved]
  - Hypertension [Not Recovered/Not Resolved]
  - Atrial fibrillation [Not Recovered/Not Resolved]
  - Pain in extremity [Not Recovered/Not Resolved]
  - Arthralgia [Not Recovered/Not Resolved]

NARRATIVE: CASE EVENT DATE: 20251020
